FAERS Safety Report 24780166 (Version 1)
Quarter: 2024Q4

REPORT INFORMATION
  Report Type: Spontaneous
  Country: SK (occurrence: SK)
  Receive Date: 20241227
  Receipt Date: 20241227
  Transmission Date: 20250114
  Serious: Yes (Other)
  Sender: CHEPLAPHARM
  Company Number: SK-CHEPLA-2024015975

PATIENT
  Age: 37 Year
  Sex: Female

DRUGS (9)
  1. OLANZAPINE [Suspect]
     Active Substance: OLANZAPINE
     Indication: Withdrawal syndrome
     Dosage: IN THE EVENING?DAILY DOSE: 20 MILLIGRAM
  2. DIAZEPAM [Suspect]
     Active Substance: DIAZEPAM
     Indication: Withdrawal syndrome
     Dosage: 100 MG DAILY ADMINISTERED EVERY 4 HOURS
  3. DIAZEPAM [Suspect]
     Active Substance: DIAZEPAM
     Indication: Withdrawal syndrome
     Dosage: 10-20 MG OVER AND ABOVE THE DAILY DOSE.
  4. HALOPERIDOL [Suspect]
     Active Substance: HALOPERIDOL
     Indication: Withdrawal syndrome
     Dosage: DAILY DOSE: 4.5 MILLIGRAM
  5. OXYBATE [Concomitant]
     Active Substance: OXYBATE
     Dosage: 1-2 ML PER DAY
  6. CANNABIS SATIVA SUBSP. INDICA TOP [Concomitant]
     Active Substance: CANNABIS SATIVA SUBSP. INDICA TOP
  7. COCAINE [Concomitant]
     Active Substance: COCAINE
  8. MIDOMAFETAMINE [Concomitant]
     Active Substance: MIDOMAFETAMINE
  9. ALPRAZOLAM [Concomitant]
     Active Substance: ALPRAZOLAM
     Indication: Withdrawal syndrome

REACTIONS (4)
  - Depressed level of consciousness [Unknown]
  - Psychomotor retardation [Unknown]
  - Off label use [Unknown]
  - Transaminases increased [Recovering/Resolving]
